FAERS Safety Report 6538258-5 (Version None)
Quarter: 2010Q1

REPORT INFORMATION
  Report Type: 
  Country: None (occurrence: None)
  Receive Date: 20100114
  Receipt Date: 20100104
  Transmission Date: 20100710
  Serious: Yes (Other)
  Sender: FDA-Public Use
  Company Number: US-SANOFI-AVENTIS-2010SA000953

PATIENT

DRUGS (1)
  1. PLAVIX [Suspect]
     Route: 065

REACTIONS (4)
  - HAEMORRHAGE [None]
  - HAEMORRHAGIC ANAEMIA [None]
  - HYPOTENSION [None]
  - RESPIRATORY FAILURE [None]
